FAERS Safety Report 17798738 (Version 2)
Quarter: 2020Q2

REPORT INFORMATION
  Report Type: Spontaneous
  Country: US (occurrence: US)
  Receive Date: 20200518
  Receipt Date: 20200604
  Transmission Date: 20200714
  Serious: Yes (Hospitalization)
  Sender: FDA-Public Use
  Company Number: US-PFIZER INC-2020194674

PATIENT
  Age: 67 Year
  Sex: Male
  Weight: 79.83 kg

DRUGS (25)
  1. FLUTICASONE PROPIONATE. [Concomitant]
     Active Substance: FLUTICASONE PROPIONATE
     Dosage: UNK, 1X/DAY[50 MCG/ACT; USE ONE SPRAY IN EACH NOSTRIL ONE TIME DAILY]
     Route: 045
  2. MEGESTROL ACETATE. [Concomitant]
     Active Substance: MEGESTROL ACETATE
     Dosage: 40 MG, DAILY
     Route: 048
  3. ONDANSETRON [Concomitant]
     Active Substance: ONDANSETRON
     Indication: VOMITING
  4. PANTOPRAZOLE SODIUM. [Concomitant]
     Active Substance: PANTOPRAZOLE SODIUM
     Dosage: 40 MG, DAILY
     Route: 048
  5. COUMADIN [Concomitant]
     Active Substance: WARFARIN SODIUM
     Indication: COAGULOPATHY
     Dosage: UNK
  6. DIGOXIN. [Concomitant]
     Active Substance: DIGOXIN
     Dosage: 125 UG, DAILY
     Route: 048
  7. METOPROLOL TARTRATE. [Concomitant]
     Active Substance: METOPROLOL TARTRATE
     Dosage: UNK, 2X/DAY[25 MG ORAL TABLET; TAKE 1/2 TABLET TWICE DAILY]
     Route: 048
  8. VENTOLIN HFA [Concomitant]
     Active Substance: ALBUTEROL SULFATE
     Indication: DYSPNOEA
     Dosage: UNK (PUFF, EVERY 2 HOURS)
     Route: 055
  9. GABAPENTIN. [Concomitant]
     Active Substance: GABAPENTIN
     Dosage: 300 MG, 1X/DAY[TAKE 1 CAPSULE BEDTIME]
     Route: 048
  10. POTASSIUM CHLORIDE. [Concomitant]
     Active Substance: POTASSIUM CHLORIDE
     Dosage: 10 MEQ, 1X/DAY[TAKE TABLET BY MOUTH EVERY DAY]
     Route: 048
  11. BUSPIRONE [Concomitant]
     Active Substance: BUSPIRONE HYDROCHLORIDE
     Dosage: 10 MG, 2X/DAY
     Route: 048
  12. MORPHINE SULFATE. [Concomitant]
     Active Substance: MORPHINE SULFATE
     Dosage: 30 MG, 3X/DAY[EVERY 8 HOURS]
     Route: 048
  13. PREDNISONE. [Concomitant]
     Active Substance: PREDNISONE
     Dosage: 60 MG, DAILY
     Route: 048
  14. PROCHLORPERAZINE MALEATE. [Concomitant]
     Active Substance: PROCHLORPERAZINE MALEATE
     Indication: NAUSEA
     Dosage: 10 MG, AS NEEDED[TAKE 1 TABLET EVERY 8 HOURS PRN N/V]
     Route: 048
  15. PROCHLORPERAZINE MALEATE. [Concomitant]
     Active Substance: PROCHLORPERAZINE MALEATE
     Indication: VOMITING
  16. SODIUM CHLORIDE. [Concomitant]
     Active Substance: SODIUM CHLORIDE
     Dosage: 1 G, 2X/DAY[1 GM ORAL TABLET; ORAL, TWICE DAILY]
     Route: 048
  17. RETAINE CMC [Concomitant]
     Dosage: UNK UNK, AS NEEDED
  18. FUROSEMIDE. [Concomitant]
     Active Substance: FUROSEMIDE
     Dosage: 20 MG, DAILY
     Route: 048
  19. ONDANSETRON [Concomitant]
     Active Substance: ONDANSETRON
     Indication: NAUSEA
     Dosage: 8 MG, AS NEEDED[8MG ORAL TABLET; TAKE 1 TABLET EVERY 8 HOURS PRN N/V]
     Route: 048
  20. XALKORI [Suspect]
     Active Substance: CRIZOTINIB
     Indication: LUNG NEOPLASM MALIGNANT
     Dosage: 250 MG, TWICE A DAY (ONE CAPSULE IN THE MORNING AND ONE IN THE EVENING)
     Route: 048
     Dates: start: 20200410, end: 20200507
  21. DULOXETINE HCL [Concomitant]
     Active Substance: DULOXETINE HYDROCHLORIDE
     Dosage: 30 MG, DAILY
     Route: 048
  22. MORPHINE SULFATE. [Concomitant]
     Active Substance: MORPHINE SULFATE
     Indication: BREAKTHROUGH PAIN
     Dosage: UNK, AS NEEDED[TAKE 1/2 (15MG) TO 1 (30MG) TABLET BY MOUTH 3 HOURS AS NEEDED]
     Route: 048
  23. NARCAN [Concomitant]
     Active Substance: NALOXONE HYDROCHLORIDE
     Dosage: UNK[4 MG/0.1ML; INJECT 1 CARTRIDGE INTO A NOSTRIL. IF NO REACTION IN 3 MINUTES, GIVE A SECOND DOSE]
     Route: 045
  24. TRAZODONE [Concomitant]
     Active Substance: TRAZODONE HYDROCHLORIDE
     Dosage: 50 MG, 1X/DAY[50 MG ORAL TABLET; TAKE 1 TABLET AT BEDTIME]
     Route: 048
  25. ELIQUIS [Concomitant]
     Active Substance: APIXABAN
     Indication: INTRACARDIAC THROMBUS

REACTIONS (7)
  - Weight decreased [Unknown]
  - Incoherent [Recovering/Resolving]
  - Pyrexia [Recovering/Resolving]
  - Fatigue [Unknown]
  - Hepatotoxicity [Unknown]
  - Hepatitis [Unknown]
  - Somnolence [Unknown]

NARRATIVE: CASE EVENT DATE: 202005
